FAERS Safety Report 7793805-0 (Version None)
Quarter: 2011Q4

REPORT INFORMATION
  Report Type: 
  Country: None (occurrence: None)
  Receive Date: 20111003
  Receipt Date: 20110921
  Transmission Date: 20120403
  Serious: Yes (Other)
  Sender: FDA-Public Use
  Company Number: PHEH2011US03220

PATIENT
  Sex: Male

DRUGS (4)
  1. TASIGNA [Suspect]
     Indication: ACUTE MYELOID LEUKAEMIA
  2. TASIGNA [Suspect]
     Indication: CHRONIC MYELOID LEUKAEMIA
     Dosage: 300 MG, BID
     Route: 048
     Dates: start: 20110822
  3. ZONISAMIDE [Concomitant]
     Dosage: 100 MG, QD2SDO
  4. PAROXETINE HCL [Concomitant]
     Dosage: 200 MG, QD

REACTIONS (9)
  - DIARRHOEA [None]
  - OROPHARYNGEAL PAIN [None]
  - ARTHROPATHY [None]
  - BACK PAIN [None]
  - NAUSEA [None]
  - CONSTIPATION [None]
  - LYMPHADENOPATHY [None]
  - HYPERSOMNIA [None]
  - DYSPHONIA [None]
